FAERS Safety Report 5317187-9 (Version None)
Quarter: 2007Q2

REPORT INFORMATION
  Report Type: 
  Country: None (occurrence: None)
  Receive Date: 20070504
  Receipt Date: 20070423
  Transmission Date: 20071010
  Serious: Yes (Hospitalization)
  Sender: FDA-Public Use
  Company Number: JP-PFIZER INC-2007018155

PATIENT
  Sex: Male
  Weight: 64 kg

DRUGS (12)
  1. LIPITOR [Suspect]
     Indication: HYPERCHOLESTEROLAEMIA
     Route: 048
     Dates: start: 20070130, end: 20070308
  2. TICLOPIDINE HYDROCHLORIDE [Suspect]
     Indication: MYOCARDIAL INFARCTION
     Route: 048
     Dates: start: 20070130, end: 20070225
  3. BUFFERIN [Concomitant]
     Route: 048
  4. AMARYL [Concomitant]
     Route: 048
     Dates: start: 19950101
  5. HALCION [Concomitant]
     Route: 048
     Dates: start: 19950101
  6. PARIET [Concomitant]
     Route: 048
     Dates: start: 20070130
  7. METOPROLOL TARTRATE [Concomitant]
     Route: 048
     Dates: start: 20070203
  8. MAGNESIUM OXIDE [Concomitant]
     Route: 048
     Dates: start: 20070203
  9. DIAPAX [Concomitant]
     Route: 048
     Dates: start: 20070204
  10. PLETAL [Concomitant]
     Dates: start: 20070130, end: 20070201
  11. PL [Concomitant]
     Dates: start: 20070131, end: 20070202
  12. LEVOFLOXACIN [Concomitant]
     Dates: start: 20070130, end: 20070201

REACTIONS (1)
  - LIVER INJURY [None]
